FAERS Safety Report 4906485-6 (Version None)
Quarter: 2006Q1

REPORT INFORMATION
  Report Type: 
  Country: None (occurrence: None)
  Receive Date: 20060206
  Receipt Date: 20060130
  Transmission Date: 20060701
  Serious: Yes (Life-Threatening, Hospitalization)
  Sender: FDA-Public Use
  Company Number: 200610332GDS

PATIENT
  Age: 69 Year
  Sex: Female

DRUGS (5)
  1. ASPIRIN [Suspect]
     Indication: THROMBOSIS PROPHYLAXIS
     Dosage: 100 MG, TOTAL DAILY, ORAL
     Route: 048
  2. TICLOPIDINE HCL [Suspect]
     Indication: THROMBOSIS PROPHYLAXIS
     Dosage: 100 MG, ORAL
     Route: 048
  3. TAGAMET [Suspect]
     Dosage: 400 MG, BID, ORAL
     Route: 048
  4. SIGMART [Concomitant]
  5. SELBEX [Concomitant]

REACTIONS (7)
  - BLOOD PRESSURE INCREASED [None]
  - CEREBRAL DISORDER [None]
  - CEREBRAL HAEMORRHAGE [None]
  - GAZE PALSY [None]
  - HEMIPARESIS [None]
  - MUSCLE RIGIDITY [None]
  - URINARY INCONTINENCE [None]
